FAERS Safety Report 6557513-6 (Version None)
Quarter: 2010Q1

REPORT INFORMATION
  Report Type: 
  Country: None (occurrence: None)
  Receive Date: 20100129
  Receipt Date: 20100119
  Transmission Date: 20100710
  Serious: Yes (Hospitalization)
  Sender: FDA-Public Use
  Company Number: US-JNJFOC-20091202593

PATIENT
  Sex: Female

DRUGS (6)
  1. REMICADE [Suspect]
     Indication: PSORIASIS
     Route: 042
  2. REMICADE [Suspect]
     Route: 042
  3. PREDNISONE [Concomitant]
     Route: 065
  4. DOXEPIN HCL [Concomitant]
     Route: 065
  5. CLARITIN [Concomitant]
     Route: 065
  6. SPIRONOLACTONE [Concomitant]
     Route: 065

REACTIONS (3)
  - DIVERTICULITIS [None]
  - PNEUMONIA [None]
  - WHITE BLOOD CELL COUNT INCREASED [None]
